FAERS Safety Report 22605477 (Version 1)
Quarter: 2023Q2

REPORT INFORMATION
  Report Type: Spontaneous
  Country: US (occurrence: US)
  Receive Date: 20230615
  Receipt Date: 20230615
  Transmission Date: 20230722
  Serious: No
  Sender: FDA-Public Use
  Company Number: US-ARBOR PHARMACEUTICALS, LLC-US-2023ARB000101

PATIENT
  Age: 42 Year
  Sex: Male

DRUGS (1)
  1. TESTOSTERONE CYPIONATE [Suspect]
     Active Substance: TESTOSTERONE CYPIONATE
     Indication: Product used for unknown indication
     Dosage: 1 ML, WEEKLY
     Route: 030
     Dates: start: 20230117, end: 20230117

REACTIONS (2)
  - Injection site pain [Recovered/Resolved]
  - Liquid product physical issue [Unknown]

NARRATIVE: CASE EVENT DATE: 20230117
